FAERS Safety Report 6723518-5 (Version None)
Quarter: 2010Q2

REPORT INFORMATION
  Report Type: 
  Country: None (occurrence: None)
  Receive Date: 20100513
  Receipt Date: 20100305
  Transmission Date: 20101027
  Serious: Yes (Hospitalization)
  Sender: FDA-Public Use
  Company Number: GB-ROCHE-684510

PATIENT
  Sex: Female
  Weight: 85.2 kg

DRUGS (7)
  1. PEGINTERFERON ALFA-2A [Suspect]
     Dosage: FORM: INJECTION, LAST DOSE PRIOR TO SAE: 26 JAN 2010
     Route: 042
     Dates: start: 20091124
  2. RO 5024048 (POLYMERASE INHIBITOR) [Suspect]
     Dosage: LAST DOSE PRIOR TO SAE: 05 FEB 2010, THERAPY PERMANENTLY DISCONTINUED, DOSE BLINDED.
     Route: 048
     Dates: start: 20091124, end: 20100205
  3. RIBAVIRIN [Suspect]
     Dosage: LAST DOSE PRIOR TO SAE: 05 FEB 2010, THERAPY TEMPORARILY INTERRUPTED.FREQUENCY: DAILY
     Route: 048
     Dates: start: 20091124, end: 20100205
  4. RIBAVIRIN [Suspect]
     Dosage: FREQUENCY: DAILY
     Route: 048
     Dates: start: 20100209
  5. BECOTIDE [Concomitant]
  6. VENTOLIN [Concomitant]
  7. FLIXOTIDE [Concomitant]

REACTIONS (1)
  - CELLULITIS [None]
